FAERS Safety Report 13899178 (Version 1)
Quarter: 2017Q3

REPORT INFORMATION
  Report Type: Other
  Country: DE (occurrence: DE)
  Receive Date: 20170824
  Receipt Date: 20170824
  Transmission Date: 20171127
  Serious: Yes (Hospitalization, Other)
  Sender: FDA-Public Use
  Company Number: DE-VELOXIS PHARMACEUTICALS-2025035

PATIENT
  Age: 53 Year
  Sex: Female

DRUGS (3)
  1. PREDNISONE. [Suspect]
     Active Substance: PREDNISONE
  2. ENVARSUS XR [Suspect]
     Active Substance: TACROLIMUS
     Indication: LIVER TRANSPLANT
  3. MYCOPHENOLATE MOFETIL. [Suspect]
     Active Substance: MYCOPHENOLATE MOFETIL

REACTIONS (6)
  - Ascites [Recovered/Resolved]
  - Biliary ischaemia [Recovered/Resolved]
  - Perihepatic abscess [Recovered/Resolved]
  - Peritonitis [Recovered/Resolved]
  - Cholangitis infective [Recovered/Resolved]
  - Candida infection [Recovered/Resolved]
